FAERS Safety Report 4887894-0 (Version None)
Quarter: 2006Q1

REPORT INFORMATION
  Report Type: 
  Country: None (occurrence: None)
  Receive Date: 20060123
  Receipt Date: 20050823
  Transmission Date: 20060701
  Serious: Yes (Hospitalization)
  Sender: FDA-Public Use
  Company Number: US-MERCK-0508USA03830

PATIENT
  Age: 57 Year
  Sex: Female
  Weight: 127 kg

DRUGS (7)
  1. VIOXX [Suspect]
     Indication: OSTEOARTHRITIS
     Route: 048
     Dates: start: 20020306, end: 20030925
  2. NORVASC [Concomitant]
     Indication: BLOOD PRESSURE
     Route: 065
  3. DYAZIDE [Concomitant]
     Route: 065
  4. ALDOMET [Concomitant]
     Indication: BLOOD PRESSURE
     Route: 065
  5. LASIX [Concomitant]
     Route: 065
  6. CELEXA [Concomitant]
     Indication: DEPRESSION
     Route: 065
  7. LORTAB [Concomitant]
     Indication: PAIN
     Route: 065

REACTIONS (16)
  - ABDOMINAL DISCOMFORT [None]
  - ANXIETY [None]
  - BLOOD CHOLESTEROL INCREASED [None]
  - BRADYCARDIA [None]
  - CORONARY ARTERY DISEASE [None]
  - DILATATION ATRIAL [None]
  - DRUG INTOLERANCE [None]
  - HERPES ZOSTER [None]
  - HYPERLIPIDAEMIA [None]
  - HYPOKALAEMIA [None]
  - MYOCARDIAL INFARCTION [None]
  - PHLEBITIS SUPERFICIAL [None]
  - PULMONARY VALVE INCOMPETENCE [None]
  - SYSTOLIC HYPERTENSION [None]
  - VENTRICULAR FIBRILLATION [None]
  - VENTRICULAR HYPERTROPHY [None]
